FAERS Safety Report 5248651-9 (Version None)
Quarter: 2007Q1

REPORT INFORMATION
  Report Type: 
  Country: None (occurrence: None)
  Receive Date: 20070226
  Receipt Date: 20070226
  Transmission Date: 20070707
  Serious: Yes (Life-Threatening, Hospitalization)
  Sender: FDA-Public Use
  Company Number: None

PATIENT
  Age: 61 Year
  Sex: Male
  Weight: 68.9467 kg

DRUGS (3)
  1. BACTRIM [Suspect]
     Indication: PROSTATITIS
     Dosage: 1 TABLET BID PO
     Route: 048
     Dates: start: 20061025, end: 20061111
  2. ZETIA [Concomitant]
  3. CRESTOR [Concomitant]

REACTIONS (3)
  - EYE INJURY [None]
  - STEVENS-JOHNSON SYNDROME [None]
  - TOXIC EPIDERMAL NECROLYSIS [None]
